FAERS Safety Report 12109181 (Version 2)
Quarter: 2016Q2

REPORT INFORMATION
  Report Type: Spontaneous
  Country: AT (occurrence: AT)
  Receive Date: 20160224
  Receipt Date: 20160602
  Transmission Date: 20160815
  Serious: Yes (Other)
  Sender: FDA-Public Use
  Company Number: AT-LEO PHARMA-240056

PATIENT
  Age: 72 Year
  Sex: Female

DRUGS (2)
  1. PICATO [Suspect]
     Active Substance: INGENOL MEBUTATE
     Indication: ACTINIC KERATOSIS
     Route: 061
  2. VIROPEL [Concomitant]
     Indication: HERPES SIMPLEX

REACTIONS (4)
  - Eczema herpeticum [Recovered/Resolved]
  - Application site scab [Recovered/Resolved]
  - Application site vesicles [Recovered/Resolved]
  - Drug administered at inappropriate site [Unknown]
